FAERS Safety Report 10627617 (Version 3)
Quarter: 2015Q1

REPORT INFORMATION
  Report Type: Report from Study
  Country: CO (occurrence: CO)
  Receive Date: 20141205
  Receipt Date: 20150123
  Transmission Date: 20150720
  Serious: Yes (Other)
  Sender: FDA-Public Use
  Company Number: CO-ROCHE-1503143

PATIENT
  Age: 73 Year
  Sex: Female
  Weight: 80 kg

DRUGS (4)
  1. NPH INSULIN [Concomitant]
     Active Substance: INSULIN BEEF
  2. LOSARTAN [Concomitant]
     Active Substance: LOSARTAN
  3. LORATADINE. [Concomitant]
     Active Substance: LORATADINE
  4. LUCENTIS [Suspect]
     Active Substance: RANIBIZUMAB
     Indication: DIABETIC COMPLICATION
     Route: 050
     Dates: start: 2013, end: 201307

REACTIONS (3)
  - Malaise [Unknown]
  - Off label use [Unknown]
  - Endometrial cancer [Unknown]

NARRATIVE: CASE EVENT DATE: 201407
